FAERS Safety Report 22153313 (Version 2)
Quarter: 2023Q2

REPORT INFORMATION
  Report Type: Spontaneous
  Country: CH (occurrence: CH)
  Receive Date: 20230329
  Receipt Date: 20230428
  Transmission Date: 20230722
  Serious: Yes (Death, Hospitalization, Other)
  Sender: FDA-Public Use
  Company Number: None

PATIENT
  Age: 36 Year
  Sex: Female
  Weight: 70 kg

DRUGS (4)
  1. IPILIMUMAB [Suspect]
     Active Substance: IPILIMUMAB
     Indication: Cervix cancer metastatic
     Dosage: IN REDUZIERTER STANDARDDOSIERUNG, KEINE NAHEREN ANGABEN
     Route: 041
     Dates: start: 20230116, end: 20230207
  2. NIVOLUMAB [Suspect]
     Active Substance: NIVOLUMAB
     Indication: Cervix cancer metastatic
     Dosage: IN REDUZIERTER STANDARDDOSIERUNG. KEINE NAHEREN ANGABEN HIERZU.
     Route: 041
     Dates: start: 20230116, end: 20230207
  3. REMERON [Concomitant]
     Active Substance: MIRTAZAPINE
     Indication: Depression
     Route: 048
     Dates: start: 20220101, end: 20230307
  4. SERTRALINE [Concomitant]
     Active Substance: SERTRALINE HYDROCHLORIDE
     Indication: Depression
     Route: 048
     Dates: start: 20220101, end: 20230228

REACTIONS (4)
  - Pneumonitis [Fatal]
  - Acute respiratory failure [Fatal]
  - Acute right ventricular failure [Fatal]
  - Off label use [Unknown]

NARRATIVE: CASE EVENT DATE: 20230227
